FAERS Safety Report 8309351-1 (Version None)
Quarter: 2012Q2

REPORT INFORMATION
  Report Type: 
  Country: None (occurrence: None)
  Receive Date: 20120425
  Receipt Date: 20120413
  Transmission Date: 20120825
  Serious: Yes (Hospitalization, Other)
  Sender: FDA-Public Use
  Company Number: JP-ASTRAZENECA-2012SE06113

PATIENT
  Age: 82 Year
  Sex: Female

DRUGS (2)
  1. MEROPENEM [Suspect]
     Indication: PNEUMONIA
     Route: 042
     Dates: start: 20111206, end: 20111212
  2. MEROPENEM [Suspect]
     Route: 042
     Dates: start: 20111231, end: 20120103

REACTIONS (4)
  - CHOLESTASIS [None]
  - BLOOD ALKALINE PHOSPHATASE INCREASED [None]
  - HEPATIC FUNCTION ABNORMAL [None]
  - AMYLASE INCREASED [None]
